FAERS Safety Report 4506809-8 (Version None)
Quarter: 2004Q4

REPORT INFORMATION
  Report Type: 
  Country: None (occurrence: None)
  Receive Date: 20041122
  Receipt Date: 20040720
  Transmission Date: 20050328
  Serious: Yes (Hospitalization)
  Sender: FDA-Public Use
  Company Number: FR-GLAXOSMITHKLINE-B0339667A

PATIENT
  Age: 48 Year
  Sex: Male
  Weight: 72 kg

DRUGS (8)
  1. ZOPHREN [Suspect]
     Dosage: 8MG PER DAY
     Route: 042
     Dates: start: 20040419
  2. CISPLATIN [Suspect]
     Indication: LUNG NEOPLASM
     Dosage: 140MG PER DAY
     Route: 042
     Dates: start: 20040419
  3. GEMZAR [Suspect]
     Indication: LUNG NEOPLASM
     Dosage: 2200MG PER DAY
     Route: 042
     Dates: start: 20040419
  4. NEURONTIN [Concomitant]
     Dosage: 3UNIT PER DAY
     Route: 048
     Dates: start: 20040115
  5. NEXIUM [Concomitant]
     Dosage: 1UNIT PER DAY
     Route: 048
     Dates: start: 20040115
  6. ASPEGIC 325 [Concomitant]
     Dosage: 250MG PER DAY
     Route: 048
     Dates: start: 20030315
  7. PLITICAN [Concomitant]
     Route: 065
  8. SOLU-MEDROL [Concomitant]
     Route: 065

REACTIONS (3)
  - ERYTHEMA [None]
  - EYELID OEDEMA [None]
  - FACE OEDEMA [None]
